FAERS Safety Report 7512325-1 (Version None)
Quarter: 2011Q2

REPORT INFORMATION
  Report Type: 
  Country: None (occurrence: None)
  Receive Date: 20110531
  Receipt Date: 20110519
  Transmission Date: 20111010
  Serious: Yes (Other)
  Sender: FDA-Public Use
  Company Number: US-ROCHE-758585

PATIENT
  Sex: Female
  Weight: 54 kg

DRUGS (2)
  1. ACCUTANE [Suspect]
     Route: 065
     Dates: end: 19960216
  2. ACCUTANE [Suspect]
     Indication: ACNE
     Route: 065
     Dates: start: 19951010, end: 19960213

REACTIONS (13)
  - DEPRESSION [None]
  - ATTENTION DEFICIT/HYPERACTIVITY DISORDER [None]
  - PYREXIA [None]
  - INFLAMMATORY BOWEL DISEASE [None]
  - EMOTIONAL DISTRESS [None]
  - CHAPPED LIPS [None]
  - VOMITING [None]
  - INJURY [None]
  - VITAMIN B12 DEFICIENCY [None]
  - WEIGHT DECREASED [None]
  - DIARRHOEA [None]
  - FATIGUE [None]
  - ABDOMINAL PAIN [None]
